FAERS Safety Report 4293173-5 (Version None)
Quarter: 2004Q1

REPORT INFORMATION
  Report Type: 
  Country: None (occurrence: None)
  Receive Date: 20040212
  Receipt Date: 20030618
  Transmission Date: 20041129
  Serious: No
  Sender: FDA-Public Use
  Company Number: US-GLAXOSMITHKLINE-A0413108A

PATIENT
  Sex: Female

DRUGS (1)
  1. PAXIL [Suspect]
     Indication: SLEEP DISORDER
     Dosage: 20MG PER DAY
     Route: 048
     Dates: start: 20030101, end: 20030614

REACTIONS (6)
  - DIZZINESS [None]
  - EARLY MORNING AWAKENING [None]
  - FEELING ABNORMAL [None]
  - INSOMNIA [None]
  - NAUSEA [None]
  - VOMITING [None]
